FAERS Safety Report 6021391-4 (Version None)
Quarter: 2008Q4

REPORT INFORMATION
  Report Type: 
  Country: None (occurrence: None)
  Receive Date: 20081229
  Receipt Date: 20081219
  Transmission Date: 20090506
  Serious: Yes (Life-Threatening, Hospitalization)
  Sender: FDA-Public Use
  Company Number: B0551250A

PATIENT
  Age: 47 Year
  Sex: Male

DRUGS (7)
  1. ARIXTRA [Suspect]
     Indication: THROMBOSIS PROPHYLAXIS
     Route: 065
     Dates: end: 20081112
  2. SEROPLEX [Suspect]
     Route: 048
  3. RAPAMYCIN [Suspect]
     Indication: RENAL CANCER
     Dosage: 25MG PER DAY
     Route: 042
     Dates: start: 20081030, end: 20081106
  4. DEPAKOTE [Concomitant]
     Route: 065
  5. FORLAX [Concomitant]
     Route: 065
  6. STILNOX [Concomitant]
     Route: 065
  7. VISCERALGINE [Concomitant]
     Route: 065

REACTIONS (5)
  - ABDOMINAL PAIN [None]
  - ANAEMIA [None]
  - ASCITES [None]
  - PLEURAL EFFUSION [None]
  - SPLENIC HAEMORRHAGE [None]
